FAERS Safety Report 18504556 (Version 1)
Quarter: 2020Q4

REPORT INFORMATION
  Report Type: Report from Study
  Country: NL (occurrence: NL)
  Receive Date: 20201114
  Receipt Date: 20201114
  Transmission Date: 20210114
  Serious: Yes (Death)
  Sender: FDA-Public Use
  Company Number: NL-ASTRAZENECA-2020SF49671

PATIENT
  Age: 20177 Day
  Sex: Female

DRUGS (1)
  1. FASLODEX [Suspect]
     Active Substance: FULVESTRANT
     Indication: BREAST CANCER
     Dosage: 500 MG, 1.00 X PER 4 WEEKS
     Route: 030
     Dates: start: 20201007, end: 20201020

REACTIONS (1)
  - Death [Fatal]

NARRATIVE: CASE EVENT DATE: 20201111
